FAERS Safety Report 7901360-7 (Version None)
Quarter: 2011Q4

REPORT INFORMATION
  Report Type: 
  Country: None (occurrence: None)
  Receive Date: 20111108
  Receipt Date: 20111103
  Transmission Date: 20120403
  Serious: Yes (Death, Hospitalization)
  Sender: FDA-Public Use
  Company Number: US-SANOFI-AVENTIS-2011SA059365

PATIENT
  Age: 47 Year
  Sex: Female
  Weight: 82 kg

DRUGS (2)
  1. ELOXATIN [Suspect]
     Indication: COLON CANCER
     Route: 065
     Dates: start: 20110506, end: 20110506
  2. ELOXATIN [Suspect]
     Route: 065
     Dates: start: 20110714, end: 20110714

REACTIONS (1)
  - DISEASE PROGRESSION [None]
